FAERS Safety Report 8535961-2 (Version None)
Quarter: 2012Q3

REPORT INFORMATION
  Report Type: 
  Country: None (occurrence: None)
  Receive Date: 20120725
  Receipt Date: 20120723
  Transmission Date: 20120928
  Serious: Yes (Hospitalization, Other)
  Sender: FDA-Public Use
  Company Number: PHHY2012CN063413

PATIENT
  Sex: Male
  Weight: 60 kg

DRUGS (2)
  1. IMATINIB MESYLATE [Suspect]
     Dosage: 400 MG, DAILY
     Dates: start: 20120512, end: 20120723
  2. IMATINIB MESYLATE [Suspect]
     Indication: CHRONIC MYELOID LEUKAEMIA
     Dosage: 400 MG, DAILY
     Dates: start: 20060101, end: 20110101

REACTIONS (6)
  - CHRONIC OBSTRUCTIVE PULMONARY DISEASE [None]
  - FATIGUE [None]
  - INTERSTITIAL LUNG DISEASE [None]
  - DYSPNOEA [None]
  - MALAISE [None]
  - CHEST DISCOMFORT [None]
